FAERS Safety Report 18260349 (Version 5)
Quarter: 2024Q2

REPORT INFORMATION
  Report Type: Other
  Country: DE (occurrence: None)
  Receive Date: 20200914
  Receipt Date: 20240516
  Transmission Date: 20240716
  Serious: Yes (Hospitalization, Other)
  Sender: FDA-Public Use
  Company Number: DE-ROCHE-2172076

PATIENT
  Age: 38 Year
  Sex: Female

DRUGS (6)
  1. OCREVUS [Suspect]
     Active Substance: OCRELIZUMAB
     Indication: Relapsing-remitting multiple sclerosis
     Dosage: SUBSEQUENT DOSE 600 MG 1 IN 178 DAYS
     Route: 042
     Dates: start: 20180810
  2. OCREVUS [Suspect]
     Active Substance: OCRELIZUMAB
     Dosage: MOST RECENT DOSE OF INFUSION (4TH INFUSION)
     Route: 042
     Dates: start: 20190904
  3. OCREVUS [Suspect]
     Active Substance: OCRELIZUMAB
     Dosage: MOST RECENT DOSE OF INFUSION (5TH INFUSION)
     Route: 042
     Dates: start: 20200428
  4. OCREVUS [Suspect]
     Active Substance: OCRELIZUMAB
     Dosage: 8TH MAINTENANCE DOSE
     Route: 042
     Dates: start: 20221006
  5. ETHINYL ESTRADIOL\LEVONORGESTREL [Concomitant]
     Active Substance: ETHINYL ESTRADIOL\LEVONORGESTREL
     Indication: Contraception
  6. EFEROX [Concomitant]
     Active Substance: LEVOTHYROXINE SODIUM

REACTIONS (7)
  - Goitre [Unknown]
  - Pneumonia [Recovered/Resolved]
  - Fatigue [Recovered/Resolved]
  - Melanocytic naevus [Recovered/Resolved]
  - Nasopharyngitis [Recovered/Resolved]
  - Cough [Recovered/Resolved]
  - Bronchitis [Recovering/Resolving]

NARRATIVE: CASE EVENT DATE: 20180810
